FAERS Safety Report 6046724-4 (Version None)
Quarter: 2009Q1

REPORT INFORMATION
  Report Type: 
  Country: None (occurrence: None)
  Receive Date: 20090122
  Receipt Date: 20090115
  Transmission Date: 20090719
  Serious: Yes (Life-Threatening, Hospitalization, Disabling)
  Sender: FDA-Public Use
  Company Number: CA-AVENTIS-200813171EU

PATIENT
  Age: 40 Year
  Sex: Male

DRUGS (9)
  1. LOVENOX [Suspect]
     Route: 058
     Dates: start: 20070503
  2. SOTALOL HCL [Concomitant]
     Route: 048
  3. PANTOLOC                           /01263201/ [Concomitant]
     Indication: PROPHYLAXIS
     Route: 048
  4. VITAMIN B-12 [Concomitant]
     Dosage: DOSE: UNK
  5. VITAMIN B6 [Concomitant]
     Dosage: DOSE: UNK
  6. FOLIC ACID [Concomitant]
     Dosage: DOSE: UNK
  7. CODEINE CONTIN [Concomitant]
     Route: 048
     Dates: start: 20071201, end: 20080401
  8. CODEINE CONTIN [Concomitant]
     Route: 048
     Dates: start: 20080401
  9. SYMBICORT [Concomitant]
     Route: 055
     Dates: start: 20080301

REACTIONS (3)
  - DEEP VEIN THROMBOSIS [None]
  - DRUG INEFFECTIVE [None]
  - PULMONARY FUNCTION TEST DECREASED [None]
